FAERS Safety Report 12862350 (Version 1)
Quarter: 2016Q4

REPORT INFORMATION
  Report Type: Spontaneous
  Country: IT (occurrence: IT)
  Receive Date: 20161019
  Receipt Date: 20161019
  Transmission Date: 20170207
  Serious: Yes (Other)
  Sender: FDA-Public Use
  Company Number: IT-TEVA-702221ACC

PATIENT
  Age: 52 Year
  Sex: Female
  Weight: 120 kg

DRUGS (3)
  1. EPIRUBICIN HYDROCHLORIDE. [Suspect]
     Active Substance: EPIRUBICIN HYDROCHLORIDE
     Indication: BREAST CANCER
     Dosage: 180 MG CYCLICAL
     Route: 042
     Dates: start: 20160216, end: 20160419
  2. CYCLOPHOSPHAMIDE. [Suspect]
     Active Substance: CYCLOPHOSPHAMIDE
     Indication: BREAST CANCER
     Dosage: 1200 MG CYCLICAL
     Route: 042
     Dates: start: 20160216, end: 20160419
  3. FORZAAR [Concomitant]
     Indication: PRODUCT USED FOR UNKNOWN INDICATION
     Dosage: 125 MG

REACTIONS (5)
  - Nausea [Recovering/Resolving]
  - Neutropenia [Unknown]
  - Constipation [Unknown]
  - Vomiting [Recovering/Resolving]
  - Alopecia [Unknown]

NARRATIVE: CASE EVENT DATE: 20160216
